FAERS Safety Report 9193431 (Version 1)
Quarter: 2013Q1

REPORT INFORMATION
  Report Type: Spontaneous
  Country: US (occurrence: US)
  Receive Date: 20130327
  Receipt Date: 20130327
  Transmission Date: 20140127
  Serious: Yes (Other)
  Sender: FDA-Public Use
  Company Number: US-PFIZER INC-2013099439

PATIENT
  Age: 70 Year
  Sex: Female
  Weight: 88.44 kg

DRUGS (6)
  1. XANAX [Suspect]
     Indication: ANXIETY
     Dosage: 0.5 MG, 2X/DAY
     Dates: start: 2013, end: 2013
  2. XANAX [Suspect]
     Dosage: UNK
     Dates: start: 20130124
  3. CRESTOR [Concomitant]
     Indication: BLOOD CHOLESTEROL INCREASED
     Dosage: UNK
  4. TRAZODONE [Concomitant]
     Indication: SLEEP DISORDER
     Dosage: UNK
  5. ZOLOFT [Concomitant]
     Indication: DEPRESSION
     Dosage: UNK
  6. ALBUTEROL SULFATE/IPRATROPIUM BROMIDE [Concomitant]
     Indication: CHRONIC OBSTRUCTIVE PULMONARY DISEASE
     Dosage: UNK

REACTIONS (6)
  - Abasia [Unknown]
  - Dyspnoea [Not Recovered/Not Resolved]
  - Malaise [Unknown]
  - Nausea [Not Recovered/Not Resolved]
  - Balance disorder [Unknown]
  - Asthenia [Not Recovered/Not Resolved]
